FAERS Safety Report 18588324 (Version 1)
Quarter: 2020Q4

REPORT INFORMATION
  Report Type: Spontaneous
  Country: US (occurrence: US)
  Receive Date: 20201207
  Receipt Date: 20201207
  Transmission Date: 20210114
  Serious: No
  Sender: FDA-Public Use
  Company Number: US-JUBILANT CADISTA PHARMACEUTICALS-2020JUB00193

PATIENT
  Sex: Female

DRUGS (3)
  1. METHYLPREDNISOLONE. [Suspect]
     Active Substance: METHYLPREDNISOLONE
     Indication: HERPES ZOSTER OTICUS
     Dosage: 24 MG
     Dates: start: 20200527
  2. PREGABALIN (UNK MANUFACTURER) [Suspect]
     Active Substance: PREGABALIN
     Indication: HERPES ZOSTER OTICUS
  3. FAMCICLOVIR (UNK MANUFACTURER) [Suspect]
     Active Substance: FAMCICLOVIR
     Indication: HERPES ZOSTER OTICUS
     Dosage: UNK
     Dates: start: 20200527

REACTIONS (2)
  - Unevaluable event [Unknown]
  - Haematochezia [Unknown]

NARRATIVE: CASE EVENT DATE: 202005
